FAERS Safety Report 6593712-5 (Version None)
Quarter: 2010Q1

REPORT INFORMATION
  Report Type: 
  Country: None (occurrence: None)
  Receive Date: 20100222
  Receipt Date: 20091210
  Transmission Date: 20100710
  Serious: No
  Sender: FDA-Public Use
  Company Number: US-BRISTOL-MYERS SQUIBB COMPANY-14892327

PATIENT
  Sex: Female

DRUGS (1)
  1. ORENCIA [Suspect]
     Dosage: 1 DOSAGE FORM: 4 INJECTIONS (SINCE OCT-2009)
     Dates: start: 20091001

REACTIONS (2)
  - MALAISE [None]
  - RASH [None]
